FAERS Safety Report 9412848 (Version 2)
Quarter: 2013Q3

REPORT INFORMATION
  Report Type: Spontaneous
  Country: RU (occurrence: RU)
  Receive Date: 20130722
  Receipt Date: 20130814
  Transmission Date: 20140515
  Serious: Yes (Death, Hospitalization)
  Sender: FDA-Public Use
  Company Number: RU-GLAXOSMITHKLINE-B0908962A

PATIENT
  Age: 30 Year
  Sex: Male

DRUGS (5)
  1. BENLYSTA [Suspect]
     Indication: SYSTEMIC LUPUS ERYTHEMATOSUS
     Route: 042
     Dates: start: 201305
  2. METYPRED [Suspect]
     Indication: SYSTEMIC LUPUS ERYTHEMATOSUS
     Dosage: 12.5MG PER DAY
     Route: 048
     Dates: start: 2013
  3. CYCLOPHOSPHAMIDE [Suspect]
     Indication: SYSTEMIC LUPUS ERYTHEMATOSUS
     Route: 065
     Dates: start: 20130708
  4. METYPRED [Suspect]
     Indication: SYSTEMIC LUPUS ERYTHEMATOSUS
     Route: 065
     Dates: start: 20130708
  5. AMOXICLAV [Concomitant]

REACTIONS (10)
  - Lobar pneumonia [Fatal]
  - Shock [Unknown]
  - Hepatic failure [Unknown]
  - Pyrexia [Unknown]
  - Platelet count decreased [Unknown]
  - Condition aggravated [Unknown]
  - Myalgia [Unknown]
  - Pain in extremity [Unknown]
  - Oedema peripheral [Unknown]
  - Product quality issue [Unknown]
